FAERS Safety Report 9186007 (Version 2)
Quarter: 2013Q4

REPORT INFORMATION
  Report Type: Spontaneous
  Country: FR (occurrence: GB)
  Receive Date: 20130325
  Receipt Date: 20131003
  Transmission Date: 20140711
  Serious: Yes (Death, Other)
  Sender: FDA-Public Use
  Company Number: GB-B.I. PHARMACEUTICALS,INC./RIDGEFIELD-2013-UK-00421UK

PATIENT
  Age: 67 Year
  Sex: Male

DRUGS (12)
  1. PRADAXA [Suspect]
     Indication: ATRIAL FIBRILLATION
     Dosage: 300 MG
     Route: 048
     Dates: start: 20110828, end: 20130202
  2. ATORVASTATIN [Concomitant]
  3. BECONASE AQUEOUS [Concomitant]
  4. BETAHISTINE [Concomitant]
  5. BISOPROLOL FUMARATE [Concomitant]
  6. OMEPRAZOLE [Concomitant]
  7. PREDNISOLONE [Concomitant]
  8. TADALAFIL [Concomitant]
  9. TAMSULOSIN HYDROCHLORIDE [Concomitant]
  10. VALSARTAN [Concomitant]
  11. HYDROXOCOBALAMIN [Concomitant]
  12. THIAMINE HYDROCHLORIDE [Concomitant]

REACTIONS (1)
  - Sudden death [Fatal]
